FAERS Safety Report 7819846-2 (Version None)
Quarter: 2011Q4

REPORT INFORMATION
  Report Type: 
  Country: None (occurrence: None)
  Receive Date: 20111018
  Receipt Date: 20110719
  Transmission Date: 20120403
  Serious: No
  Sender: FDA-Public Use
  Company Number: US-ASTRAZENECA-2010SE07332

PATIENT
  Age: 59 Year
  Sex: Female

DRUGS (3)
  1. SYMBICORT [Suspect]
     Dosage: 160 / 4.5 MCG
     Route: 055
  2. RHINOCORT [Suspect]
     Route: 045
  3. NEXIUM [Concomitant]

REACTIONS (4)
  - MALAISE [None]
  - INCORRECT DOSE ADMINISTERED [None]
  - EPISTAXIS [None]
  - PULMONARY CONGESTION [None]
